FAERS Safety Report 8809572 (Version 1)
Quarter: 2012Q4

REPORT INFORMATION
  Report Type: 
  Country: JP (occurrence: JP)
  Receive Date: 20120926
  Receipt Date: 20120926
  Transmission Date: 20130627
  Serious: Yes (Life-Threatening, Hospitalization)
  Sender: FDA-Public Use
  Company Number: JP-ABBOTT-12P-087-0973590-00

PATIENT
  Age: 83 Year
  Sex: Male

DRUGS (8)
  1. LEUPLIN DEPOT [Suspect]
     Indication: PROSTATE CANCER
     Route: 058
     Dates: start: 20120326, end: 20120326
  2. CASODEX [Suspect]
     Indication: PROSTATE CANCER
     Route: 048
     Dates: start: 20120305, end: 20120506
  3. WARFARIN POTASSIUM [Concomitant]
     Indication: CEREBRAL INFARCTION
     Route: 048
  4. GASPORT [Concomitant]
     Indication: GASTRITIS
     Route: 048
  5. MAIBASTAN [Concomitant]
     Indication: HYPERLIPIDAEMIA
     Route: 048
  6. ALLORIN [Concomitant]
     Indication: HYPERURICAEMIA
     Route: 048
  7. AMLODIN [Concomitant]
     Indication: HYPERTENSION
     Route: 048
  8. OLMETEC [Concomitant]
     Indication: HYPERTENSION
     Route: 048

REACTIONS (1)
  - Interstitial lung disease [Recovered/Resolved with Sequelae]
